FAERS Safety Report 9477787 (Version 4)
Quarter: 2014Q1

REPORT INFORMATION
  Report Type: Report from Study
  Country: DE (occurrence: DE)
  Receive Date: 20130827
  Receipt Date: 20140327
  Transmission Date: 20141002
  Serious: Yes (Life-Threatening, Hospitalization)
  Sender: FDA-Public Use
  Company Number: DE-ROCHE-1253178

PATIENT
  Age: 38 Year
  Sex: Female
  Weight: 42 kg

DRUGS (3)
  1. BEVACIZUMAB [Suspect]
     Indication: OVARIAN CANCER
     Dosage: LAST DOSE PRIOR TO SAE ON 06 AUG 2013, LAST DOSE PRIOR TO SAE: 27/AUG/2013
     Route: 042
     Dates: start: 20130528, end: 20130912
  2. CARBOPLATIN [Suspect]
     Indication: OVARIAN CANCER
     Dosage: LAST DOSE PRIOR TO SAE ON 06 AUG 2013, LAST DOSE PRIOR TO SAE: 27/AUG/2013
     Route: 042
     Dates: start: 20130528, end: 20130912
  3. PACLITAXEL [Suspect]
     Indication: OVARIAN CANCER
     Dosage: LAST DOSE PRIOR TO SAE ON 06 AUG 2013, LAST DOSE PRIOR TO SAE: 27/AUG/2013
     Route: 042
     Dates: start: 20130528, end: 20130912

REACTIONS (5)
  - Febrile neutropenia [Recovered/Resolved]
  - Gastroenteritis clostridial [Recovered/Resolved]
  - Pulmonary embolism [Recovered/Resolved]
  - Pneumonia [Recovered/Resolved]
  - Gangrene [Recovered/Resolved]
